FAERS Safety Report 24378473 (Version 1)
Quarter: 2024Q3

REPORT INFORMATION
  Report Type: Spontaneous
  Country: FR (occurrence: FR)
  Receive Date: 20240930
  Receipt Date: 20240930
  Transmission Date: 20241016
  Serious: Yes (Hospitalization)
  Sender: ABBVIE
  Company Number: None

PATIENT
  Age: 42 Year
  Sex: Female

DRUGS (1)
  1. BOTULINUM TOXIN TYPE A [Suspect]
     Active Substance: BOTULINUM TOXIN TYPE A
     Indication: Skin wrinkling
     Dosage: TIME INTERVAL: AS NECESSARY: 1FP?DOSE INCONNUE BACTERIE/CLOSTRIDIUM BOTULINUM
     Route: 023
     Dates: start: 20240823, end: 20240823

REACTIONS (1)
  - Botulism [Not Recovered/Not Resolved]

NARRATIVE: CASE EVENT DATE: 20240826
